FAERS Safety Report 13226178 (Version 2)
Quarter: 2017Q1

REPORT INFORMATION
  Report Type: Spontaneous
  Country: DK (occurrence: DK)
  Receive Date: 20170213
  Receipt Date: 20170216
  Transmission Date: 20170428
  Serious: Yes (Hospitalization)
  Sender: FDA-Public Use
  Company Number: DK-PFIZER INC-2017057504

PATIENT
  Age: 97 Year
  Sex: Female

DRUGS (11)
  1. PINEX [Concomitant]
     Active Substance: ACETAMINOPHEN
  2. TOILAX [Concomitant]
     Active Substance: BISACODYL
  3. FRAGMIN [Suspect]
     Active Substance: DALTEPARIN SODIUM
     Dates: start: 20170123, end: 20170128
  4. COMBIVENT [Concomitant]
     Active Substance: ALBUTEROL SULFATE\IPRATROPIUM BROMIDE
  5. MIRTAZAPIN ^2CARE4^ [Concomitant]
  6. XARELTO [Suspect]
     Active Substance: RIVAROXABAN
     Indication: ATRIAL FIBRILLATION
     Dosage: STRENGTH: 15 MG
     Route: 048
     Dates: start: 20170120, end: 20170123
  7. FUROSEMID [Concomitant]
     Active Substance: FUROSEMIDE
  8. PANTOPRAZOLE [Concomitant]
     Active Substance: PANTOPRAZOLE SODIUM
  9. CEFUROXIM ^B. BRAUN^ [Concomitant]
  10. HJERTEMAGNYL /00002701/ [Suspect]
     Active Substance: ASPIRIN
     Indication: ANTICOAGULANT THERAPY
     Route: 048
     Dates: start: 20120719, end: 20170123
  11. GANGIDEN [Concomitant]

REACTIONS (3)
  - Gastrointestinal haemorrhage [Recovered/Resolved]
  - Melaena [Recovered/Resolved]
  - Haemoglobin decreased [Unknown]

NARRATIVE: CASE EVENT DATE: 20170128
